FAERS Safety Report 4266972-3 (Version None)
Quarter: 2004Q1

REPORT INFORMATION
  Report Type: 
  Country: None (occurrence: None)
  Receive Date: 20040108
  Receipt Date: 20021204
  Transmission Date: 20041129
  Serious: No
  Sender: FDA-Public Use
  Company Number: US-BRISTOL-MYERS SQUIBB COMPANY-12129391

PATIENT
  Age: 74 Year
  Sex: Female
  Weight: 54 kg

DRUGS (3)
  1. NADOLOL [Suspect]
     Route: 048
     Dates: start: 20020308
  2. CHLORPHENIRAMINE MALEATE [Concomitant]
  3. PREMARIN [Concomitant]

REACTIONS (1)
  - ABDOMINAL PAIN UPPER [None]
